FAERS Safety Report 14658552 (Version 1)
Quarter: 2018Q1

REPORT INFORMATION
  Report Type: Spontaneous
  Country: US (occurrence: US)
  Receive Date: 20180320
  Receipt Date: 20180320
  Transmission Date: 20180509
  Serious: No
  Sender: FDA-Public Use
  Company Number: US-PFIZER INC-2018113841

PATIENT
  Sex: Female

DRUGS (1)
  1. ADVIL [Suspect]
     Active Substance: IBUPROFEN
     Dosage: 4 DF, 3X/DAY (TAKE 4 ADVIL AT ONE TIME THREE TIMES A DAY)
     Dates: start: 20180228

REACTIONS (2)
  - Intentional overdose [Unknown]
  - Pain [Unknown]

NARRATIVE: CASE EVENT DATE: 20180228
